FAERS Safety Report 16490034 (Version 1)
Quarter: 2019Q2

REPORT INFORMATION
  Report Type: Spontaneous
  Country: US (occurrence: US)
  Receive Date: 20190628
  Receipt Date: 20190628
  Transmission Date: 20190711
  Serious: Yes (Hospitalization)
  Sender: FDA-Public Use
  Company Number: US-ASTRAZENECA-2019SE92108

PATIENT
  Age: 19713 Day
  Sex: Female

DRUGS (1)
  1. FASENRA [Suspect]
     Active Substance: BENRALIZUMAB
     Indication: ASTHMA
     Dosage: EVERY 4 WEEKS FOR FIRST 3 DOSES THEN EVERY 8 WEEKS THEREAFTER
     Route: 058
     Dates: start: 20190516

REACTIONS (8)
  - Swelling of eyelid [Unknown]
  - Asthma [Not Recovered/Not Resolved]
  - Headache [Unknown]
  - Swelling face [Unknown]
  - Cerebrovascular accident [Unknown]
  - Hypoaesthesia [Unknown]
  - Hypersensitivity [Unknown]
  - Generalised oedema [Unknown]

NARRATIVE: CASE EVENT DATE: 20190613
